FAERS Safety Report 7045625-2 (Version None)
Quarter: 2010Q4

REPORT INFORMATION
  Report Type: 
  Country: None (occurrence: None)
  Receive Date: 20101014
  Receipt Date: 20101005
  Transmission Date: 20110411
  Serious: Yes (Hospitalization)
  Sender: FDA-Public Use
  Company Number: JP-ASTRAZENECA-2010SE44255

PATIENT
  Age: 79 Year
  Sex: Female
  Weight: 42 kg

DRUGS (11)
  1. ARIMIDEX [Suspect]
     Indication: BREAST CANCER
     Route: 048
     Dates: start: 20100520, end: 20100705
  2. MEVALOTIN [Concomitant]
     Indication: HYPERLIPIDAEMIA
     Route: 048
  3. PERINDOPRIL ERBUMINE [Concomitant]
     Indication: HYPERTENSION
     Route: 048
  4. ALFAROL [Concomitant]
     Indication: OSTEOPOROSIS
     Route: 048
  5. TAKEPRON [Concomitant]
     Indication: GASTRIC ULCER
     Route: 048
  6. GASMOTIN [Concomitant]
     Indication: GASTRITIS
     Route: 048
  7. MAGLAX [Concomitant]
     Indication: CONSTIPATION
     Route: 048
  8. LOXONIN [Concomitant]
     Indication: BACK PAIN
     Route: 048
  9. BUP-4 [Concomitant]
     Indication: NEUROGENIC BLADDER
     Route: 048
  10. BENET [Concomitant]
     Indication: OSTEOPOROSIS
     Route: 048
  11. LENDORMIN D [Concomitant]
     Indication: INSOMNIA
     Route: 048

REACTIONS (1)
  - INTERSTITIAL LUNG DISEASE [None]
